FAERS Safety Report 10358602 (Version 2)
Quarter: 2014Q3

REPORT INFORMATION
  Report Type: Spontaneous
  Country: GB (occurrence: GB)
  Receive Date: 20140803
  Receipt Date: 20140924
  Transmission Date: 20150326
  Serious: Yes (Other)
  Sender: FDA-Public Use
  Company Number: PHFR2014GB005251

PATIENT
  Age: 70 Year
  Sex: Male

DRUGS (13)
  1. CLOZARIL [Suspect]
     Active Substance: CLOZAPINE
     Dosage: 225 MG, UNK
     Route: 048
     Dates: start: 201404
  2. FERROUS SULFATE [Concomitant]
     Active Substance: FERROUS SULFATE\FERROUS SULFATE, DRIED
     Indication: ANAEMIA
     Dosage: 200 MG, UNK
     Route: 048
  3. MOVICOL [Concomitant]
     Active Substance: POLYETHYLENE GLYCOL 3350\POTASSIUM CHLORIDE\SODIUM BICARBONATE\SODIUM CHLORIDE
     Dosage: 2 SACHETS DAILY
     Route: 048
  4. LANSOPRAZOLE. [Concomitant]
     Active Substance: LANSOPRAZOLE
     Dosage: 30 MG, BID
     Route: 048
  5. PARACETAMOL [Concomitant]
     Active Substance: ACETAMINOPHEN
     Dosage: 1 G, QD
     Route: 048
  6. ADCAL [Concomitant]
     Indication: OSTEOPOROSIS
     Dosage: UNK UKN, UNK
     Route: 048
     Dates: start: 201402
  7. DOMPERIDONE [Concomitant]
     Active Substance: DOMPERIDONE
     Indication: NAUSEA
     Dosage: 200 MG, UNK
     Route: 048
  8. RISEDRONATE [Concomitant]
     Active Substance: RISEDRONATE SODIUM
     Dosage: 35 MG, QW
     Route: 048
  9. CLOZARIL [Suspect]
     Active Substance: CLOZAPINE
     Dosage: UNK
     Route: 048
     Dates: start: 20140317
  10. DOCUSATE [Concomitant]
     Active Substance: DOCUSATE
     Indication: CONSTIPATION
     Dosage: 200 MG, UNK
     Route: 048
  11. CLOZARIL [Suspect]
     Active Substance: CLOZAPINE
     Dosage: 250 MG ONCE DAILY
     Route: 048
  12. TIOCONAZOLE [Concomitant]
     Active Substance: TIOCONAZOLE
     Indication: ONYCHOMYCOSIS
     Dosage: UNK UKN, UNK
  13. LAXIDO [Concomitant]
     Active Substance: POLYETHYLENE GLYCOL 3350\POTASSIUM CHLORIDE\SODIUM BICARBONATE\SODIUM CHLORIDE
     Dosage: 2 SACHETS, DAILY
     Route: 048

REACTIONS (17)
  - Cerebral infarction [Unknown]
  - Amylase increased [Unknown]
  - White blood cell count increased [Recovered/Resolved]
  - Barrett^s oesophagus [Unknown]
  - Pancreatitis [Recovered/Resolved]
  - Gait disturbance [Unknown]
  - Hyponatraemia [Unknown]
  - Renal impairment [Unknown]
  - Hydronephrosis [Unknown]
  - Transient ischaemic attack [Unknown]
  - Pain [Unknown]
  - Cerebrovascular accident [Unknown]
  - Neutrophil count increased [Recovered/Resolved]
  - Platelet count increased [Not Recovered/Not Resolved]
  - Reduced bladder capacity [Unknown]
  - Cognitive disorder [Not Recovered/Not Resolved]
  - Pneumonia [Unknown]

NARRATIVE: CASE EVENT DATE: 20140324
